FAERS Safety Report 6068381-3 (Version None)
Quarter: 2009Q1

REPORT INFORMATION
  Report Type: 
  Country: None (occurrence: None)
  Receive Date: 20090203
  Receipt Date: 20090123
  Transmission Date: 20090719
  Serious: Yes (Hospitalization)
  Sender: FDA-Public Use
  Company Number: 2009SP001686

PATIENT
  Age: 70 Year
  Sex: Female

DRUGS (7)
  1. TEMODAL [Suspect]
     Indication: GLIOBLASTOMA
  2. DEXA RATIOPHARM [Concomitant]
  3. PANTOZOL [Concomitant]
  4. DIAVAN [Concomitant]
  5. NOVALGIN [Concomitant]
  6. IDEOS [Concomitant]
  7. EMBOLEX [Concomitant]

REACTIONS (2)
  - LUMBAR VERTEBRAL FRACTURE [None]
  - THORACIC VERTEBRAL FRACTURE [None]
